FAERS Safety Report 20767594 (Version 1)
Quarter: 2022Q2

REPORT INFORMATION
  Report Type: Spontaneous
  Country: US (occurrence: US)
  Receive Date: 20220429
  Receipt Date: 20220429
  Transmission Date: 20220721
  Serious: Yes (Death, Hospitalization, Other)
  Sender: FDA-Public Use
  Company Number: US-ALKEM LABORATORIES LIMITED-US-ALKEM-2022-03044

PATIENT
  Age: 50 Year
  Sex: Female

DRUGS (3)
  1. CLOZAPINE [Suspect]
     Active Substance: CLOZAPINE
     Indication: Schizophrenia
     Dosage: 300 MILLIGRAM, OD
     Route: 065
  2. CLOZAPINE [Suspect]
     Active Substance: CLOZAPINE
     Dosage: 175 MILLIGRAM, OD
     Route: 065
     Dates: start: 201910
  3. QUETIAPINE FUMARATE [Suspect]
     Active Substance: QUETIAPINE FUMARATE
     Indication: Schizophrenia
     Dosage: 100 MILLIGRAM, OD
     Route: 065

REACTIONS (5)
  - Pneumonia [Fatal]
  - Hypoxia [Fatal]
  - Vaginal haemorrhage [Fatal]
  - Hypotension [Fatal]
  - Pulmonary embolism [Fatal]
